FAERS Safety Report 8163471-3 (Version None)
Quarter: 2012Q1

REPORT INFORMATION
  Report Type: 
  Country: None (occurrence: None)
  Receive Date: 20120224
  Receipt Date: 20120215
  Transmission Date: 20120608
  Serious: Yes (Disabling)
  Sender: FDA-Public Use
  Company Number: US-JNJFOC-20110203662

PATIENT
  Sex: Female
  Weight: 46.5 kg

DRUGS (22)
  1. ANTIBIOTICS [Concomitant]
     Indication: INFLAMMATORY BOWEL DISEASE
  2. BENADRYL [Concomitant]
     Route: 048
     Dates: start: 20100308
  3. REMICADE [Suspect]
     Indication: INFLAMMATORY BOWEL DISEASE
     Route: 042
     Dates: start: 20100520
  4. REMICADE [Suspect]
     Route: 042
     Dates: start: 20100224
  5. REMICADE [Suspect]
     Route: 042
     Dates: start: 20100405
  6. ACETAMINOPHEN [Concomitant]
     Indication: PREMEDICATION
     Route: 048
     Dates: start: 20100630
  7. ACETAMINOPHEN [Concomitant]
     Route: 048
     Dates: start: 20100308
  8. BENADRYL [Concomitant]
     Route: 048
     Dates: start: 20100224
  9. ACETAMINOPHEN [Concomitant]
     Route: 048
     Dates: start: 20100809, end: 20100809
  10. BENADRYL [Concomitant]
     Route: 048
     Dates: start: 20100405
  11. REMICADE [Suspect]
     Route: 042
     Dates: start: 20100809, end: 20100920
  12. PREDNISONE [Concomitant]
  13. REMICADE [Suspect]
     Route: 042
     Dates: start: 20100630
  14. ACETAMINOPHEN [Concomitant]
     Route: 048
     Dates: start: 20100520
  15. BUDESONIDE [Concomitant]
  16. REMICADE [Suspect]
     Route: 042
     Dates: start: 20100308
  17. ACETAMINOPHEN [Concomitant]
     Route: 048
     Dates: start: 20100405
  18. BENADRYL [Concomitant]
     Indication: PREMEDICATION
     Route: 048
     Dates: start: 20100809, end: 20100809
  19. BENADRYL [Concomitant]
     Route: 048
     Dates: start: 20100520
  20. ACETAMINOPHEN [Concomitant]
     Route: 048
     Dates: start: 20100224
  21. MESALAMINE [Concomitant]
     Route: 048
  22. BENADRYL [Concomitant]
     Route: 048
     Dates: start: 20100630

REACTIONS (1)
  - LUPUS-LIKE SYNDROME [None]
